FAERS Safety Report 8834184 (Version 5)
Quarter: 2016Q3

REPORT INFORMATION
  Report Type: Spontaneous
  Country: US (occurrence: US)
  Receive Date: 20121010
  Receipt Date: 20160920
  Transmission Date: 20161109
  Serious: Yes (Hospitalization, Disabling, Other)
  Sender: FDA-Public Use
  Company Number: US-009507513-1210USA004457

PATIENT
  Sex: Female
  Weight: 65.76 kg

DRUGS (2)
  1. FOSAMAX [Suspect]
     Active Substance: ALENDRONATE SODIUM
     Indication: OSTEOPOROSIS
     Dosage: 70 MG, UNK
     Route: 048
     Dates: start: 200706, end: 200903
  2. FOSAMAX PLUS D [Suspect]
     Active Substance: ALENDRONATE SODIUM\CHOLECALCIFEROL
     Indication: OSTEOPOROSIS
     Dosage: 70 MG/2800, QW
     Route: 048
     Dates: start: 200607, end: 200812

REACTIONS (33)
  - Basal cell carcinoma [Unknown]
  - Adenotonsillectomy [Unknown]
  - Dyspnoea exertional [Unknown]
  - Bone metabolism disorder [Unknown]
  - Tooth extraction [Unknown]
  - Nausea [Recovered/Resolved]
  - Skin disorder [Unknown]
  - Intervertebral disc operation [Unknown]
  - Chest pain [Recovered/Resolved]
  - Osteoarthritis [Unknown]
  - Lithotripsy [Unknown]
  - Antinuclear antibody positive [Unknown]
  - Foot fracture [Unknown]
  - Anaemia [Unknown]
  - Fracture nonunion [Recovering/Resolving]
  - Hypokalaemia [Unknown]
  - Femur fracture [Recovered/Resolved]
  - Compression fracture [Unknown]
  - Depression [Unknown]
  - Stomatitis [Unknown]
  - Electrocardiogram T wave inversion [Not Recovered/Not Resolved]
  - Vitamin D abnormal [Unknown]
  - Nephrolithiasis [Unknown]
  - Connective tissue disorder [Unknown]
  - Carpal tunnel syndrome [Unknown]
  - Low turnover osteopathy [Not Recovered/Not Resolved]
  - Oedema peripheral [Unknown]
  - Autoimmune disorder [Unknown]
  - Device failure [Recovering/Resolving]
  - Abdominal panniculectomy [Unknown]
  - Blood cholesterol increased [Unknown]
  - Gastrooesophageal reflux disease [Unknown]
  - Vomiting [Recovered/Resolved]

NARRATIVE: CASE EVENT DATE: 200707
